FAERS Safety Report 23236872 (Version 2)
Quarter: 2024Q1

REPORT INFORMATION
  Report Type: Spontaneous
  Country: US (occurrence: US)
  Receive Date: 20231128
  Receipt Date: 20240103
  Transmission Date: 20240410
  Serious: No
  Sender: FDA-Public Use
  Company Number: US-GLAXOSMITHKLINE-US2023159092

PATIENT
  Age: 68 Year
  Sex: Female
  Weight: 59.87 kg

DRUGS (1)
  1. ZEJULA [Suspect]
     Active Substance: NIRAPARIB
     Indication: Ovarian cancer
     Dosage: 200 MG, QD
     Route: 048
     Dates: start: 20231006

REACTIONS (5)
  - Carbohydrate antigen 125 increased [Unknown]
  - Stomatitis [Unknown]
  - Initial insomnia [Unknown]
  - Nausea [Unknown]
  - White blood cell count decreased [Not Recovered/Not Resolved]

NARRATIVE: CASE EVENT DATE: 20231227
